FAERS Safety Report 9147275 (Version 1)
Quarter: 2013Q1

REPORT INFORMATION
  Report Type: Spontaneous
  Country: DK (occurrence: None)
  Receive Date: 20130226
  Receipt Date: 20130226
  Transmission Date: 20140127
  Serious: Yes (Death)
  Sender: FDA-Public Use
  Company Number: 2013MA001312

PATIENT
  Age: 82 Year
  Sex: 0

DRUGS (7)
  1. BUTALBITAL, ASPIRIN AND CAFFEINE TABLETS [Suspect]
     Indication: CARDIAC DISORDER
     Dosage: 11/--/2012  -  11/--/2012
     Dates: start: 201211, end: 201211
  2. CLOPIDOGREL (CLOPIDOGREL) [Suspect]
     Indication: CARDIAC DISORDER
     Dosage: 11/--/2012  -  11/--/2012
     Dates: start: 201211, end: 201211
  3. ENOXAPARIN [Suspect]
     Indication: CARDIAC DISORDER
     Dosage: 11/--/2012  -  11/--/2012
     Dates: start: 201211, end: 201211
  4. CANDESARTAN [Concomitant]
  5. FLUOXETINE [Concomitant]
  6. INSULIN [Concomitant]
  7. INHALERS [Concomitant]

REACTIONS (1)
  - Retroperitoneal haemorrhage [None]
